FAERS Safety Report 16600451 (Version 2)
Quarter: 2019Q3

REPORT INFORMATION
  Report Type: Spontaneous
  Country: CN (occurrence: CN)
  Receive Date: 20190719
  Receipt Date: 20190821
  Transmission Date: 20191004
  Serious: Yes (Other)
  Sender: FDA-Public Use
  Company Number: CN-UCBSA-2019030107

PATIENT
  Sex: Female
  Weight: 27 kg

DRUGS (3)
  1. KEPPRA [Suspect]
     Active Substance: LEVETIRACETAM
     Dosage: 1.25 TABLET TWICE DAILY
     Dates: start: 201907
  2. KEPPRA [Suspect]
     Active Substance: LEVETIRACETAM
     Dosage: 1.5 TABLET TWICE DAILY
     Dates: start: 2018
  3. KEPPRA [Suspect]
     Active Substance: LEVETIRACETAM
     Indication: PRODUCT USED FOR UNKNOWN INDICATION
     Dosage: 250 MILLIGRAM, 2X/DAY (BID)
     Dates: start: 201802

REACTIONS (5)
  - Generalised tonic-clonic seizure [Unknown]
  - Drug ineffective [Unknown]
  - Emotional disorder [Unknown]
  - Intentional product misuse [Unknown]
  - Product dose omission [Unknown]

NARRATIVE: CASE EVENT DATE: 2018
